FAERS Safety Report 5946024-4 (Version None)
Quarter: 2008Q4

REPORT INFORMATION
  Report Type: 
  Country: None (occurrence: None)
  Receive Date: 20081106
  Receipt Date: 20081030
  Transmission Date: 20090506
  Serious: Yes (Death)
  Sender: FDA-Public Use
  Company Number: 2008JP004995

PATIENT
  Age: 82 Month
  Sex: Female
  Weight: 27 kg

DRUGS (6)
  1. PROGRAF [Suspect]
     Indication: RHEUMATOID ARTHRITIS
     Dosage: 1 MG, UID/QD
     Dates: start: 20080610, end: 20080813
  2. RIMATIL (BUCILLAMINE) TABLET [Suspect]
     Indication: RHEUMATOID ARTHRITIS
     Dosage: 100 MG, BID, ORAL
     Route: 048
     Dates: start: 20080610, end: 20080813
  3. PREDNISOLONE [Concomitant]
  4. GASPORT TABLET [Concomitant]
  5. MUCODYNE (CARBOCISTEINE) TABLET [Concomitant]
  6. CLINORIL (SULINDAC) TABLET [Concomitant]

REACTIONS (4)
  - GENERAL PHYSICAL HEALTH DETERIORATION [None]
  - INTERSTITIAL LUNG DISEASE [None]
  - OXYGEN SATURATION DECREASED [None]
  - RESPIRATORY FAILURE [None]
